FAERS Safety Report 19920469 (Version 1)
Quarter: 2021Q4

REPORT INFORMATION
  Report Type: Spontaneous
  Country: US (occurrence: US)
  Receive Date: 20211005
  Receipt Date: 20211005
  Transmission Date: 20220303
  Serious: No
  Sender: FDA-Public Use
  Company Number: US-BAYER-2021A223449

PATIENT
  Age: 8 Decade
  Sex: Male

DRUGS (1)
  1. KERENDIA [Suspect]
     Active Substance: FINERENONE
     Dosage: 10 MG, QD

REACTIONS (2)
  - Blood potassium increased [None]
  - Glomerular filtration rate increased [None]

NARRATIVE: CASE EVENT DATE: 20210101
